FAERS Safety Report 14956083 (Version 1)
Quarter: 2018Q2

REPORT INFORMATION
  Report Type: Spontaneous
  Country: US (occurrence: US)
  Receive Date: 20180531
  Receipt Date: 20180531
  Transmission Date: 20180711
  Serious: No
  Sender: FDA-Public Use
  Company Number: US-NOVEN PHARMACEUTICALS, INC.-US2018000009

PATIENT

DRUGS (1)
  1. DAYTRANA [Suspect]
     Active Substance: METHYLPHENIDATE
     Indication: ATTENTION DEFICIT/HYPERACTIVITY DISORDER
     Dosage: 10 MG, UNKNOWN
     Route: 062
     Dates: start: 201712, end: 20171231

REACTIONS (10)
  - Application site erythema [Unknown]
  - Application site irritation [Unknown]
  - Application site pruritus [Unknown]
  - Product adhesion issue [Recovered/Resolved]
  - Therapy cessation [Not Recovered/Not Resolved]
  - Drug effect delayed [Recovered/Resolved]
  - Aggression [Unknown]
  - Application site pain [Unknown]
  - Product quality issue [Recovered/Resolved]
  - Anger [Unknown]

NARRATIVE: CASE EVENT DATE: 201712
